FAERS Safety Report 6744542-2 (Version None)
Quarter: 2010Q2

REPORT INFORMATION
  Report Type: 
  Country: None (occurrence: None)
  Receive Date: 20100526
  Receipt Date: 20100526
  Transmission Date: 20101027
  Serious: Yes (Disabling)
  Sender: FDA-Public Use
  Company Number: None

PATIENT
  Age: 87 Year
  Sex: Male

DRUGS (1)
  1. BORTEZOMIB [Suspect]
     Indication: NEOPLASM MALIGNANT
     Dosage: 1.9 MG ONCE IV
     Route: 042
     Dates: start: 20100318, end: 20100329

REACTIONS (2)
  - ANAEMIA [None]
  - NEUROPATHY PERIPHERAL [None]
